FAERS Safety Report 5849171-0 (Version None)
Quarter: 2008Q3

REPORT INFORMATION
  Report Type: 
  Country: None (occurrence: None)
  Receive Date: 20080819
  Receipt Date: 20080807
  Transmission Date: 20090109
  Serious: Yes (Other)
  Sender: FDA-Public Use
  Company Number: US-JNJFOC-20080802002

PATIENT
  Sex: Female
  Weight: 54.43 kg

DRUGS (9)
  1. DURAGESIC-100 [Suspect]
     Route: 062
  2. DURAGESIC-100 [Suspect]
     Route: 062
  3. DURAGESIC-100 [Suspect]
     Route: 062
  4. DURAGESIC-100 [Suspect]
     Route: 062
  5. DURAGESIC-100 [Suspect]
     Indication: PAIN
     Route: 062
  6. VALIUM [Concomitant]
     Indication: BREAKTHROUGH PAIN
     Dosage: 1-2 TABLETS A DAY AS NEEDED
     Route: 048
  7. NORCO [Concomitant]
     Indication: BREAKTHROUGH PAIN
     Dosage: TWO 10/325 MG TABLETS 2 TIMES PER DAY AS NEEDED
     Route: 048
  8. ALBUTEROL [Concomitant]
     Indication: ASTHMA
     Route: 055
  9. YAZ [Concomitant]
     Indication: HORMONE THERAPY
     Route: 048

REACTIONS (7)
  - APPLICATION SITE IRRITATION [None]
  - HYPOTHYROIDISM [None]
  - INCORRECT DRUG ADMINISTRATION DURATION [None]
  - PITUITARY TUMOUR BENIGN [None]
  - PYREXIA [None]
  - WEIGHT DECREASED [None]
  - WITHDRAWAL SYNDROME [None]
